FAERS Safety Report 19653455 (Version 2)
Quarter: 2021Q3

REPORT INFORMATION
  Report Type: Spontaneous
  Country: US (occurrence: US)
  Receive Date: 20210803
  Receipt Date: 20210906
  Transmission Date: 20211014
  Serious: Yes (Other)
  Sender: FDA-Public Use
  Company Number: US-ROCHE-2878166

PATIENT
  Sex: Female

DRUGS (15)
  1. ZOLPIDEM [Concomitant]
     Active Substance: ZOLPIDEM TARTRATE
  2. TUKYSA [Suspect]
     Active Substance: TUCATINIB
     Indication: BREAST CANCER METASTATIC
     Route: 065
     Dates: start: 20210504
  3. FUROSEMIDE. [Concomitant]
     Active Substance: FUROSEMIDE
  4. SUDOGEST [Concomitant]
     Active Substance: PSEUDOEPHEDRINE HYDROCHLORIDE
  5. KADCYLA [Suspect]
     Active Substance: ADO-TRASTUZUMAB EMTANSINE
     Indication: BREAST CANCER METASTATIC
     Route: 065
  6. PERJETA [Suspect]
     Active Substance: PERTUZUMAB
     Indication: BREAST CANCER METASTATIC
     Route: 065
  7. LOMOTIL [Concomitant]
     Active Substance: ATROPINE SULFATE\DIPHENOXYLATE HYDROCHLORIDE
  8. OXYCODONE [Concomitant]
     Active Substance: OXYCODONE
  9. CITALOPRAM [Concomitant]
     Active Substance: CITALOPRAM HYDROBROMIDE
  10. GABAPENTIN. [Concomitant]
     Active Substance: GABAPENTIN
  11. TRIAMCINOLONE [Concomitant]
     Active Substance: TRIAMCINOLONE
  12. LIDOCAINE;PROCAINE [Concomitant]
  13. HERCEPTIN [Suspect]
     Active Substance: TRASTUZUMAB
     Indication: BREAST CANCER METASTATIC
     Route: 065
  14. XELODA [Suspect]
     Active Substance: CAPECITABINE
     Indication: BREAST CANCER METASTATIC
     Route: 048
  15. SPIRONOLACTONE. [Concomitant]
     Active Substance: SPIRONOLACTONE

REACTIONS (48)
  - Memory impairment [Unknown]
  - Diarrhoea [Unknown]
  - Dizziness [Unknown]
  - Ageusia [Unknown]
  - Pulmonary pain [Unknown]
  - Pneumonia aspiration [Unknown]
  - Blood alkaline phosphatase increased [Unknown]
  - Protein total decreased [Unknown]
  - Immunoglobulins increased [Unknown]
  - Gastric disorder [Unknown]
  - Renal impairment [Unknown]
  - Abdominal pain [Unknown]
  - Abdominal distension [Unknown]
  - Mean cell volume increased [Unknown]
  - Eating disorder [Unknown]
  - Flatulence [Unknown]
  - Weight increased [Unknown]
  - Drug intolerance [Unknown]
  - Blood glucose increased [Unknown]
  - Red blood cell count decreased [Unknown]
  - Lymphocyte count decreased [Unknown]
  - Monocyte count increased [Unknown]
  - Haemoglobin decreased [Unknown]
  - Cognitive disorder [Unknown]
  - Skin ulcer [Unknown]
  - Vomiting [Unknown]
  - Weight decreased [Unknown]
  - Ascites [Unknown]
  - Alanine aminotransferase increased [Unknown]
  - Blood albumin decreased [Unknown]
  - Red cell distribution width increased [Unknown]
  - Haematocrit decreased [Unknown]
  - Tremor [Unknown]
  - Decreased appetite [Unknown]
  - White blood cell count decreased [Unknown]
  - Rash erythematous [Unknown]
  - Oedema peripheral [Unknown]
  - Dyspnoea [Unknown]
  - Nausea [Unknown]
  - Asthenia [Unknown]
  - Illness [Unknown]
  - Hepatic function abnormal [Unknown]
  - Mean cell haemoglobin concentration increased [Unknown]
  - Confusional state [Unknown]
  - Vertigo [Unknown]
  - Constipation [Unknown]
  - Aspartate aminotransferase increased [Unknown]
  - Platelet count decreased [Unknown]
